FAERS Safety Report 9527505 (Version 2)
Quarter: 2013Q3

REPORT INFORMATION
  Report Type: Report from Study
  Country: CO (occurrence: CO)
  Receive Date: 20130917
  Receipt Date: 20130917
  Transmission Date: 20140515
  Serious: Yes (Death, Hospitalization)
  Sender: FDA-Public Use
  Company Number: CO-ROCHE-1233769

PATIENT
  Age: 60 Year
  Sex: Female

DRUGS (2)
  1. VALIXA [Suspect]
     Indication: INFECTION PROPHYLAXIS
     Route: 048
     Dates: start: 20130206
  2. VALIXA [Suspect]
     Indication: RENAL TRANSPLANT

REACTIONS (3)
  - Postoperative wound infection [Fatal]
  - Respiratory failure [Fatal]
  - Bacteraemia [Fatal]
